FAERS Safety Report 11504309 (Version 1)
Quarter: 2015Q3

REPORT INFORMATION
  Report Type: Report from Study
  Country: CA (occurrence: CA)
  Receive Date: 20150915
  Receipt Date: 20150915
  Transmission Date: 20151125
  Serious: Yes (Other)
  Sender: FDA-Public Use
  Company Number: CA-ROCHE-1628475

PATIENT
  Age: 63 Year
  Sex: Female

DRUGS (14)
  1. RITUXAN [Suspect]
     Active Substance: RITUXIMAB
     Indication: RHEUMATOID ARTHRITIS
     Route: 042
     Dates: start: 20150827
  2. ACETAMINOPHEN. [Concomitant]
     Active Substance: ACETAMINOPHEN
     Indication: PREMEDICATION
     Route: 048
     Dates: start: 20150827
  3. FOLIC ACID. [Concomitant]
     Active Substance: FOLIC ACID
  4. METHOTREXATE [Concomitant]
     Active Substance: METHOTREXATE
  5. DILAUDID [Concomitant]
     Active Substance: HYDROMORPHONE HYDROCHLORIDE
  6. SUCRALFATE. [Concomitant]
     Active Substance: SUCRALFATE
  7. METHYLPREDNISOLONE. [Suspect]
     Active Substance: METHYLPREDNISOLONE
     Indication: PREMEDICATION
     Route: 042
     Dates: start: 20150827
  8. AZITHROMYCIN [Concomitant]
     Active Substance: AZITHROMYCIN ANHYDROUS
     Dosage: NIGHTLY FOR EYES
     Route: 065
  9. DIPHENHYDRAMINE HCL [Concomitant]
     Active Substance: DIPHENHYDRAMINE HYDROCHLORIDE
     Indication: PREMEDICATION
     Route: 048
     Dates: start: 20150827
  10. TECTA [Concomitant]
     Active Substance: PANTOPRAZOLE MAGNESIUM
  11. DOMPERIDONE [Concomitant]
     Active Substance: DOMPERIDONE
  12. SULFASALAZINE. [Concomitant]
     Active Substance: SULFASALAZINE
     Dosage: 5+ YEARS OF USE BEFORE START OF RITUXIMAB
     Route: 065
  13. SIMVASTATIN. [Concomitant]
     Active Substance: SIMVASTATIN
  14. VITAMIN C [Concomitant]
     Active Substance: ASCORBIC ACID

REACTIONS (9)
  - Palpitations [Unknown]
  - Oxygen saturation decreased [Unknown]
  - Malaise [Unknown]
  - Dyspepsia [Unknown]
  - Chest pain [Unknown]
  - Hypertension [Unknown]
  - Arthralgia [Unknown]
  - Heart rate increased [Unknown]
  - Cystitis [Unknown]

NARRATIVE: CASE EVENT DATE: 20150910
